FAERS Safety Report 10308937 (Version 1)
Quarter: 2014Q3

REPORT INFORMATION
  Report Type: Spontaneous
  Country: ES (occurrence: ES)
  Receive Date: 20140716
  Receipt Date: 20140716
  Transmission Date: 20150326
  Serious: Yes (Other)
  Sender: FDA-Public Use
  Company Number: PHHY2014ES086401

PATIENT
  Age: 68 Year
  Sex: Male

DRUGS (1)
  1. XOTERNA BREEZHALER [Suspect]
     Active Substance: GLYCOPYRRONIUM\INDACATEROL
     Dosage: 1 DF, QD
     Route: 055
     Dates: start: 20140624, end: 20140627

REACTIONS (4)
  - Muscular weakness [Recovered/Resolved]
  - Oral disorder [None]
  - Fungal infection [Recovered/Resolved]
  - Blindness unilateral [Recovered/Resolved]

NARRATIVE: CASE EVENT DATE: 20140624
